FAERS Safety Report 7645128-8 (Version None)
Quarter: 2011Q3

REPORT INFORMATION
  Report Type: 
  Country: None (occurrence: None)
  Receive Date: 20110729
  Receipt Date: 20110725
  Transmission Date: 20111222
  Serious: Yes (Death, Disabling, Other)
  Sender: FDA-Public Use
  Company Number: US-AMGEN-USASP2010007440

PATIENT
  Age: 81 Year
  Sex: Male

DRUGS (4)
  1. NPLATE [Suspect]
     Dates: start: 20100629
  2. NPLATE [Suspect]
     Indication: IDIOPATHIC THROMBOCYTOPENIC PURPURA
     Dosage: 3 A?G/KG, UNK
     Dates: start: 20100622, end: 20100710
  3. NPLATE [Suspect]
     Dosage: 3 A?G/KG, UNK
     Dates: start: 20100710
  4. NPLATE [Suspect]
     Dates: start: 20100629

REACTIONS (3)
  - DEATH [None]
  - DRUG INEFFECTIVE [None]
  - CEREBROVASCULAR ACCIDENT [None]
